FAERS Safety Report 8021575-X (Version None)
Quarter: 2011Q4

REPORT INFORMATION
  Report Type: 
  Country: None (occurrence: None)
  Receive Date: 20111230
  Receipt Date: 20111222
  Transmission Date: 20120403
  Serious: Yes (Other)
  Sender: FDA-Public Use
  Company Number: 1112202

PATIENT
  Age: 48 Year
  Sex: Male

DRUGS (5)
  1. IRINOTECAN HYDROCHLORIDE [Suspect]
     Indication: GASTROINTESTINAL CARCINOMA
     Dates: end: 20110809
  2. OXALIPLATIN [Suspect]
     Indication: COLON CANCER METASTATIC
  3. FLUOROURACIL [Suspect]
     Indication: GASTROINTESTINAL CARCINOMA
     Dates: end: 20110809
  4. AVASTIN [Suspect]
     Indication: GASTROINTESTINAL CARCINOMA
     Dates: end: 20110727
  5. CAPECITABINE [Suspect]
     Indication: COLON CANCER METASTATIC

REACTIONS (6)
  - COLON CANCER METASTATIC [None]
  - NEOPLASM MALIGNANT [None]
  - CARCINOEMBRYONIC ANTIGEN INCREASED [None]
  - HAND FRACTURE [None]
  - INJURY [None]
  - LIVER DISORDER [None]
